FAERS Safety Report 25478506 (Version 1)
Quarter: 2025Q2

REPORT INFORMATION
  Report Type: Spontaneous
  Country: US (occurrence: None)
  Receive Date: 20250624
  Receipt Date: 20250624
  Transmission Date: 20250716
  Serious: Yes (Other)
  Sender: FDA-CTU
  Company Number: None

PATIENT
  Sex: Female
  Weight: 78.3 kg

DRUGS (2)
  1. METHOTREXATE [Suspect]
     Active Substance: METHOTREXATE
     Indication: Granulomatosis with polyangiitis
     Route: 058
     Dates: start: 20250616, end: 20250618
  2. Methotrexate Sodium (methotrexate PF) 50 MG/2ML injection [Concomitant]
     Dates: start: 20250616, end: 20250618

REACTIONS (2)
  - Vomiting [None]
  - Musculoskeletal stiffness [None]

NARRATIVE: CASE EVENT DATE: 20250618
